FAERS Safety Report 6958559-6 (Version None)
Quarter: 2010Q3

REPORT INFORMATION
  Report Type: 
  Country: None (occurrence: None)
  Receive Date: 20100831
  Receipt Date: 20100823
  Transmission Date: 20110219
  Serious: Yes (Other)
  Sender: FDA-Public Use
  Company Number: BR-ROCHE-723530

PATIENT
  Sex: Female
  Weight: 57 kg

DRUGS (4)
  1. PEGINTERFERON ALFA-2A [Suspect]
     Indication: HEPATITIS C
     Dosage: ROUTE AND DOSE: UNKNOWN
     Route: 058
     Dates: start: 20070101, end: 20070101
  2. PEGINTERFERON ALFA-2A [Suspect]
     Route: 058
     Dates: start: 20100821
  3. RIBAVIRIN [Concomitant]
  4. ALPRAZOLAM [Concomitant]
     Indication: ANXIETY

REACTIONS (4)
  - DRUG INEFFECTIVE [None]
  - HEADACHE [None]
  - IMMUNODEFICIENCY [None]
  - WHITE BLOOD CELL COUNT DECREASED [None]
